FAERS Safety Report 15838974 (Version 1)
Quarter: 2019Q1

REPORT INFORMATION
  Report Type: Report from Study
  Country: CA (occurrence: CA)
  Receive Date: 20190117
  Receipt Date: 20190117
  Transmission Date: 20190417
  Serious: Yes (Other)
  Sender: FDA-Public Use
  Company Number: CA-APOPHARMA-2018AP027876

PATIENT
  Sex: Male
  Weight: 22 kg

DRUGS (2)
  1. FERRIPROX [Suspect]
     Active Substance: DEFERIPRONE
     Indication: THALASSAEMIA BETA
     Dosage: 45 MG/KG, TID
     Route: 048
     Dates: start: 20140101
  2. JADENU [Suspect]
     Active Substance: DEFERASIROX
     Indication: THALASSAEMIA BETA
     Dosage: 540 MG, QD
     Route: 048

REACTIONS (1)
  - Hepatic enzyme increased [Recovered/Resolved with Sequelae]
